FAERS Safety Report 17769269 (Version 1)
Quarter: 2020Q2

REPORT INFORMATION
  Report Type: Spontaneous
  Country: US (occurrence: US)
  Receive Date: 20200512
  Receipt Date: 20200512
  Transmission Date: 20200714
  Serious: Yes (Hospitalization)
  Sender: FDA-Public Use
  Company Number: US-LEADINGPHARMA-US-2020LEALIT00065

PATIENT
  Age: 68 Year
  Sex: Female

DRUGS (10)
  1. MYCOPHENOLATE MOFETIL. [Concomitant]
     Active Substance: MYCOPHENOLATE MOFETIL
     Indication: IMMUNOSUPPRESSION
     Route: 065
  2. LORAZEPAM TABLETS USP [Suspect]
     Active Substance: LORAZEPAM
     Route: 048
  3. DULOXETINE. [Suspect]
     Active Substance: DULOXETINE
     Indication: MENTAL DISORDER
     Dosage: 20 MG PER DAY
     Route: 065
  4. TACROLIMUS. [Suspect]
     Active Substance: TACROLIMUS
     Indication: IMMUNOSUPPRESSION
     Route: 065
  5. QUETIAPINE. [Suspect]
     Active Substance: QUETIAPINE
     Indication: MENTAL DISORDER
     Dosage: 200 MG PER DAY
     Route: 065
  6. LORAZEPAM TABLETS USP [Suspect]
     Active Substance: LORAZEPAM
     Indication: CATATONIA
     Route: 048
  7. LORAZEPAM TABLETS USP [Suspect]
     Active Substance: LORAZEPAM
     Route: 048
  8. LAMOTRIGINE. [Suspect]
     Active Substance: LAMOTRIGINE
     Indication: MENTAL DISORDER
     Dosage: 200 MG PER DAY
     Route: 065
  9. PREDNISONE. [Concomitant]
     Active Substance: PREDNISONE
     Dosage: 2.5 MG DAILY
     Route: 065
  10. FAMCICLOVIR. [Suspect]
     Active Substance: FAMCICLOVIR
     Indication: MENINGOENCEPHALITIS HERPETIC
     Dosage: 500 MG PER DAY
     Route: 065

REACTIONS (8)
  - Disorientation [Unknown]
  - Disinhibition [Recovered/Resolved]
  - Cognitive disorder [Recovered/Resolved]
  - Sedation [Unknown]
  - Delirium [Unknown]
  - Nystagmus [Unknown]
  - Toxicity to various agents [Unknown]
  - Ataxia [Unknown]
